FAERS Safety Report 18469098 (Version 1)
Quarter: 2020Q4

REPORT INFORMATION
  Report Type: Spontaneous
  Country: US (occurrence: US)
  Receive Date: 20201105
  Receipt Date: 20201105
  Transmission Date: 20210114
  Serious: Yes (Other)
  Sender: FDA-Public Use
  Company Number: US-BAYER-2020-233357

PATIENT
  Age: 85 Year
  Sex: Male

DRUGS (1)
  1. CORICIDIN HBP MAXIMUM STRENGTH COLD, COUGH AND FLU [Suspect]
     Active Substance: ACETAMINOPHEN\DEXTROMETHORPHAN HYDROBROMIDE\GUAIFENESIN
     Dosage: 2 DF, Q4HR
     Route: 048
     Dates: start: 20201026

REACTIONS (3)
  - Incorrect dose administered [Unknown]
  - Dysgeusia [Unknown]
  - Choking [Recovered/Resolved with Sequelae]

NARRATIVE: CASE EVENT DATE: 20201027
